FAERS Safety Report 5481560-9 (Version None)
Quarter: 2007Q4

REPORT INFORMATION
  Report Type: 
  Country: None (occurrence: None)
  Receive Date: 20071005
  Receipt Date: 20071005
  Transmission Date: 20080405
  Serious: Yes (Life-Threatening, Hospitalization)
  Sender: FDA-Public Use
  Company Number: None

PATIENT

DRUGS (1)
  1. LYMPHAZURIN [Suspect]

REACTIONS (2)
  - ANAPHYLACTIC SHOCK [None]
  - PROCEDURAL COMPLICATION [None]
